FAERS Safety Report 9675133 (Version 1)
Quarter: 2013Q4

REPORT INFORMATION
  Report Type: Spontaneous
  Country: US (occurrence: None)
  Receive Date: 20131106
  Receipt Date: 20131106
  Transmission Date: 20140711
  Serious: Yes (Hospitalization, Disabling, Other)
  Sender: FDA-Public Use
  Company Number: None

PATIENT
  Age: 77 Year
  Sex: Female
  Weight: 70.31 kg

DRUGS (8)
  1. HYDRALAZINE [Suspect]
     Indication: BLOOD PRESSURE INCREASED
     Dates: start: 20130923
  2. HYDRALAZINE [Suspect]
     Indication: STRESS AT WORK
     Dates: start: 20130923
  3. CARVEDILOL [Suspect]
  4. LOSARTAN [Concomitant]
  5. SYNTHROID [Concomitant]
  6. VIT D3 [Concomitant]
  7. BIOTIN [Concomitant]
  8. XANAX [Concomitant]

REACTIONS (7)
  - Depression [None]
  - Blood pressure increased [None]
  - Stress at work [None]
  - Headache [None]
  - Diarrhoea [None]
  - Angina pectoris [None]
  - Loss of employment [None]
